FAERS Safety Report 9339641 (Version 3)
Quarter: 2013Q2

REPORT INFORMATION
  Report Type: Spontaneous
  Country: US (occurrence: US)
  Receive Date: 20130610
  Receipt Date: 20130626
  Transmission Date: 20140414
  Serious: No
  Sender: FDA-Public Use
  Company Number: US-BIOGENIDEC-2013BI051098

PATIENT
  Age: 36 Year
  Sex: Male

DRUGS (2)
  1. TYSABRI [Suspect]
     Indication: MULTIPLE SCLEROSIS
     Route: 042
     Dates: start: 20130524
  2. AMPYRA [Concomitant]
     Indication: GAIT DISTURBANCE

REACTIONS (6)
  - Syncope [Recovered/Resolved]
  - Diplopia [Not Recovered/Not Resolved]
  - Pyrexia [Recovered/Resolved]
  - Muscular weakness [Unknown]
  - Abasia [Recovered/Resolved]
  - Loss of control of legs [Recovered/Resolved]
